FAERS Safety Report 5344207-8 (Version None)
Quarter: 2007Q2

REPORT INFORMATION
  Report Type: 
  Country: None (occurrence: None)
  Receive Date: 20070604
  Receipt Date: 20070521
  Transmission Date: 20071010
  Serious: Yes (Hospitalization)
  Sender: FDA-Public Use
  Company Number: IT-ROCHE-498479

PATIENT
  Age: 78 Year
  Sex: Female

DRUGS (7)
  1. TORADOL [Suspect]
     Indication: MYALGIA
     Dosage: STRENGTH REPORTED AS 20+12.5 MG.
     Route: 065
     Dates: start: 20070410, end: 20070512
  2. ASPIRIN [Suspect]
     Indication: ANTICOAGULANT THERAPY
     Dosage: ENALPRIL+HYDROCHLOROTHIZIDE: 20+12.5 MG
     Route: 048
     Dates: start: 19920510, end: 20070510
  3. AULIN [Suspect]
     Indication: MYALGIA
     Dosage: PHLOROGLUCINOL/TROSPIUM CHLORIDE: 80+80 MG
     Route: 048
     Dates: start: 20070511, end: 20070512
  4. ISOPTIN [Concomitant]
     Route: 048
     Dates: start: 19920510, end: 20070510
  5. VASERETIC [Concomitant]
     Route: 048
     Dates: start: 19990510, end: 20070510
  6. GLYCERYL TRINITRATE [Concomitant]
     Dosage: DRUG NAME REPORTED AS NITRODUR
     Route: 062
     Dates: start: 19920510, end: 20070510
  7. SPASMEX [Concomitant]
     Route: 048
     Dates: start: 20070410, end: 20070415

REACTIONS (4)
  - DUODENAL ULCER [None]
  - GASTRITIS EROSIVE [None]
  - HIATUS HERNIA [None]
  - OESOPHAGITIS [None]
